FAERS Safety Report 14681970 (Version 2)
Quarter: 2020Q3

REPORT INFORMATION
  Report Type: Spontaneous
  Country: US (occurrence: US)
  Receive Date: 20180326
  Receipt Date: 20200701
  Transmission Date: 20201102
  Serious: Yes (Other)
  Sender: FDA-Public Use
  Company Number: US-BRISTOL-MYERS SQUIBB COMPANY-BMS-2018-027548

PATIENT
  Age: 85 Year
  Sex: Female

DRUGS (2)
  1. CABIRALIZUMAB [Concomitant]
     Active Substance: CABIRALIZUMAB
     Indication: PRODUCT USED FOR UNKNOWN INDICATION
     Route: 065
  2. NIVOLUMAB [Suspect]
     Active Substance: NIVOLUMAB
     Indication: PANCREATIC CARCINOMA
     Route: 065

REACTIONS (3)
  - Lichenoid keratosis [Recovered/Resolved]
  - Intentional product use issue [Unknown]
  - Keratoacanthoma [Recovered/Resolved]
